FAERS Safety Report 15279211 (Version 1)
Quarter: 2018Q3

REPORT INFORMATION
  Report Type: Spontaneous
  Country: AU (occurrence: AU)
  Receive Date: 20180815
  Receipt Date: 20180815
  Transmission Date: 20181010
  Serious: Yes (Other)
  Sender: FDA-Public Use
  Company Number: AU-B.I. PHARMACEUTICALS,INC./RIDGEFIELD-2018-BI-040211

PATIENT
  Age: 7 Decade
  Sex: Female
  Weight: 57 kg

DRUGS (10)
  1. CLOPIDOGREL [Concomitant]
     Active Substance: CLOPIDOGREL BISULFATE
     Indication: PRODUCT USED FOR UNKNOWN INDICATION
     Route: 065
  2. XANAX [Concomitant]
     Active Substance: ALPRAZOLAM
     Indication: PRODUCT USED FOR UNKNOWN INDICATION
     Route: 065
  3. ASPIRIN. [Concomitant]
     Active Substance: ASPIRIN
     Indication: PRODUCT USED FOR UNKNOWN INDICATION
     Route: 065
  4. SIFROL [Suspect]
     Active Substance: PRAMIPEXOLE
     Indication: RESTLESS LEGS SYNDROME
     Route: 065
  5. SIFROL [Suspect]
     Active Substance: PRAMIPEXOLE
     Route: 065
  6. MOCLOBOMIDE [Concomitant]
     Indication: DEPRESSION
     Route: 065
  7. OXYCODONE [Concomitant]
     Active Substance: OXYCODONE
     Indication: PRODUCT USED FOR UNKNOWN INDICATION
     Route: 065
  8. METHOTREXATE. [Concomitant]
     Active Substance: METHOTREXATE
     Indication: PRODUCT USED FOR UNKNOWN INDICATION
     Route: 065
  9. PLAQUENIL [Concomitant]
     Active Substance: HYDROXYCHLOROQUINE SULFATE
     Indication: PRODUCT USED FOR UNKNOWN INDICATION
     Route: 065
  10. ENDONE [Concomitant]
     Active Substance: OXYCODONE HYDROCHLORIDE
     Indication: PRODUCT USED FOR UNKNOWN INDICATION
     Route: 065

REACTIONS (13)
  - Inguinal hernia [Unknown]
  - Rotator cuff syndrome [Unknown]
  - Peripheral swelling [Unknown]
  - Carcinoma in situ [Unknown]
  - Impulse-control disorder [Recovered/Resolved]
  - Areflexia [Unknown]
  - Bursitis [Unknown]
  - Romberg test positive [Unknown]
  - Neuropathy peripheral [Unknown]
  - Hyperparathyroidism [Unknown]
  - Bundle branch block left [Unknown]
  - Sleep attacks [Unknown]
  - Headache [Unknown]
